FAERS Safety Report 5263034-3 (Version None)
Quarter: 2007Q1

REPORT INFORMATION
  Report Type: 
  Country: None (occurrence: None)
  Receive Date: 20070312
  Receipt Date: 20070306
  Transmission Date: 20070707
  Serious: Yes (Other)
  Sender: FDA-Public Use
  Company Number: DK-ROXANE LABORATORIES, INC-2007-DE-01370GD

PATIENT

DRUGS (7)
  1. HYDROCORTISONE [Suspect]
     Route: 015
  2. PROPRANOLOL [Suspect]
     Route: 015
  3. AZATHIOPRINE [Suspect]
     Route: 015
  4. CYCLOSPORINE [Suspect]
     Route: 015
  5. PREDNISOLONE [Suspect]
     Route: 015
  6. SULFASALAZINE [Suspect]
     Route: 015
  7. ANTIBIOTICS [Suspect]
     Route: 015

REACTIONS (1)
  - SMALL FOR DATES BABY [None]
